FAERS Safety Report 12011631 (Version 1)
Quarter: 2016Q1

REPORT INFORMATION
  Report Type: Spontaneous
  Country: FR (occurrence: FR)
  Receive Date: 20160205
  Receipt Date: 20160205
  Transmission Date: 20160526
  Serious: Yes (Hospitalization)
  Sender: FDA-Public Use
  Company Number: FR-ACTAVIS-2016-02300

PATIENT
  Age: 47 Year
  Sex: Female

DRUGS (3)
  1. BUPRENORPHINE (UNKNOWN) [Suspect]
     Active Substance: BUPRENORPHINE
     Indication: DRUG DEPENDENCE
     Dosage: 8 MG, UNK
     Route: 065
  2. NALMEFENE [Interacting]
     Active Substance: NALMEFENE
     Indication: ALCOHOLISM
     Dosage: 18 MG, SINGLE
     Route: 048
  3. BROMAZEPAM [Concomitant]
     Active Substance: BROMAZEPAM
     Indication: DRUG WITHDRAWAL SYNDROME
     Dosage: 36 MG, UNK
     Route: 065

REACTIONS (3)
  - Drug interaction [Unknown]
  - Drug withdrawal syndrome [Recovering/Resolving]
  - Drug prescribing error [Unknown]
